FAERS Safety Report 8492282-4 (Version None)
Quarter: 2012Q3

REPORT INFORMATION
  Report Type: 
  Country: None (occurrence: None)
  Receive Date: 20120706
  Receipt Date: 20120629
  Transmission Date: 20120928
  Serious: Yes (Death)
  Sender: FDA-Public Use
  Company Number: US-ROCHE-1077628

PATIENT
  Sex: Female
  Weight: 46.6 kg

DRUGS (3)
  1. ZELBORAF [Suspect]
     Indication: METASTATIC MALIGNANT MELANOMA
     Route: 048
     Dates: start: 20120503, end: 20120531
  2. CARBONYL IRON [Concomitant]
     Indication: ANAEMIA
     Route: 048
  3. OXYCODONE HCL [Concomitant]
     Indication: PAIN
     Route: 048

REACTIONS (3)
  - INTESTINAL PERFORATION [None]
  - LABORATORY TEST ABNORMAL [None]
  - SEPSIS [None]
